FAERS Safety Report 4341388-X (Version None)
Quarter: 2004Q2

REPORT INFORMATION
  Report Type: 
  Country: None (occurrence: None)
  Receive Date: 20040413
  Receipt Date: 20040401
  Transmission Date: 20050107
  Serious: Yes (Disabling)
  Sender: FDA-Public Use
  Company Number: HQWYE315901APR04

PATIENT
  Age: 62 Year
  Sex: Male

DRUGS (5)
  1. AMIODARONE (AMIODARONE, TABLET) [Suspect]
     Indication: ATRIAL FIBRILLATION
     Dosage: 200 MG 1X PER 1 DAY ORAL
     Route: 048
     Dates: start: 20010313, end: 20040302
  2. PRAVASTATIN [Concomitant]
  3. BISOPROLOL FUMARATE [Concomitant]
  4. WARFARIN SODIUM [Concomitant]
  5. RAMIPRIL [Concomitant]

REACTIONS (1)
  - OPTIC ATROPHY [None]
